FAERS Safety Report 14777564 (Version 11)
Quarter: 2022Q2

REPORT INFORMATION
  Report Type: Spontaneous
  Country: US (occurrence: US)
  Receive Date: 20180419
  Receipt Date: 20220429
  Transmission Date: 20220720
  Serious: No
  Sender: FDA-Public Use
  Company Number: US-PFIZER INC-2018160605

PATIENT
  Age: 69 Year
  Sex: Female
  Weight: 81 kg

DRUGS (20)
  1. LYRICA [Suspect]
     Active Substance: PREGABALIN
     Indication: Multiple sclerosis
     Dosage: 100 MG, 3X/DAY
     Route: 048
  2. LYRICA [Suspect]
     Active Substance: PREGABALIN
     Indication: Trigeminal neuralgia
     Dosage: 100 MG, 4X/DAY (AS DIRECTED FOR 90 DAYS)
     Route: 048
  3. AMANTADINE HYDROCHLORIDE [Concomitant]
     Active Substance: AMANTADINE HYDROCHLORIDE
     Dosage: 100 MG, 2X/DAY
     Route: 048
  4. AMANTADINE HYDROCHLORIDE [Concomitant]
     Active Substance: AMANTADINE HYDROCHLORIDE
     Dosage: 100 MG, DAILY
     Route: 048
  5. ASPIRIN [Concomitant]
     Active Substance: ASPIRIN
     Dosage: 81 MG, DAILY
     Route: 048
  6. DIETARY SUPPLEMENT [Concomitant]
     Active Substance: DIETARY SUPPLEMENT
     Dosage: UNK
  7. CARBAMAZEPINE [Concomitant]
     Active Substance: CARBAMAZEPINE
     Dosage: 400 MG, 4X/DAY (200 MG TABLET/TAKE 2 TABLET(S) 4 TIMES A DAY)
     Route: 048
  8. GABAPENTIN [Concomitant]
     Active Substance: GABAPENTIN
     Dosage: 600 MG, 4X/DAY
     Route: 048
  9. GABAPENTIN [Concomitant]
     Active Substance: GABAPENTIN
     Dosage: 600 MG, 3X/DAY (TAKING THREE TIMES DAILY, WILL ADD ADDITIONAL PILL IF NEEDED)
  10. ALBUTEROL\IPRATROPIUM [Concomitant]
     Active Substance: ALBUTEROL\IPRATROPIUM
     Dosage: 12 ML, AS NEEDED (IPRATROPIUM 0.5 MG /ALBUTEROL-2.5 MG; / 2.5 ML; INHALE 3 ML EVERY 6 HOURS)
     Route: 055
  11. DEPAKOTE [Concomitant]
     Active Substance: DIVALPROEX SODIUM
     Indication: Pain
     Dosage: 1 G, AS NEEDED OVER 20 MINUTES (WITH MAGNESIUM SULPHATE: THREE TIMES MONTHLY PRN)
     Route: 042
  12. MAGNESIUM SULFATE [Concomitant]
     Active Substance: MAGNESIUM SULFATE
     Indication: Pain
     Dosage: 1 G, AS NEEDED OVER 45 MINUTES (WITH DEPAKOTE: ONE TREATMENT THREE TIMES MONTHLY PRN)
     Route: 042
  13. LATANOPROST [Concomitant]
     Active Substance: LATANOPROST
     Dosage: 1 DF, DAILY (1 DROP, IN THE EVENING)
     Route: 047
  14. MIRALAX [Concomitant]
     Active Substance: POLYETHYLENE GLYCOL 3350
     Dosage: 17 G, DAILY
     Route: 048
  15. MOTRIN IB [Concomitant]
     Active Substance: IBUPROFEN
     Dosage: 200 MG, AS NEEDED (TAKE 3 TABLETS EVERY 8 HOURS BY ORAL ROUTE AS NEEDED)
     Route: 048
  16. PRAVASTATIN [Concomitant]
     Active Substance: PRAVASTATIN
     Dosage: 40 MG, DAILY
     Route: 048
  17. SENOKOT [Concomitant]
     Active Substance: SENNOSIDES
     Dosage: 8.6 MG, 2X/DAY
     Route: 048
  18. ULTRAM [Concomitant]
     Active Substance: TRAMADOL HYDROCHLORIDE
     Dosage: 50 MG, AS NEEDED (TAKE 1 TABLET(S) EVERY 6 HOURS BY ORAL ROUTE AS NEEDED)
     Route: 048
  19. VENTOLIN HFA [Concomitant]
     Active Substance: ALBUTEROL SULFATE
     Dosage: 90 UG, AS NEEDED (INHALE 2 PUFFS EVERY 4 HOURS AS NEEDED)
     Route: 055
  20. VITAMIN B2 [Concomitant]
     Active Substance: RIBOFLAVIN
     Dosage: 100 MG, DAILY
     Route: 048

REACTIONS (2)
  - Pain [Unknown]
  - Pain in jaw [Unknown]
